FAERS Safety Report 9927758 (Version 1)
Quarter: 2014Q1

REPORT INFORMATION
  Report Type: Report from Study
  Country: US (occurrence: US)
  Receive Date: 20140227
  Receipt Date: 20140227
  Transmission Date: 20141002
  Serious: Yes (Death, Other)
  Sender: FDA-Public Use
  Company Number: US-BRISTOL-MYERS SQUIBB COMPANY-20221214

PATIENT
  Age: 71 Year
  Sex: Male

DRUGS (14)
  1. PACLITAXEL [Suspect]
     Indication: NEOPLASM MALIGNANT
     Dosage: MOST RECENT DOSE:LLOCT13,90MG,L IN 7D
     Route: 042
     Dates: start: 20130201
  2. FAMOTIDINE [Concomitant]
  3. ZOFRAN [Concomitant]
  4. ADVAIR DISKUS [Concomitant]
     Indication: COUGH
     Route: 055
     Dates: start: 20130315
  5. LOSARTAN [Concomitant]
     Indication: HYPERTENSION
     Dates: start: 20130315
  6. ASPIRIN [Concomitant]
     Indication: PAIN
     Dates: start: 20130315
  7. IMODIUM [Concomitant]
     Indication: NAUSEA
  8. VITAMIN B6 [Concomitant]
  9. VITAMIN B12 [Concomitant]
  10. VITAMIN C [Concomitant]
     Dosage: 1DF: 0.3UNITS NOS
  11. VITAMIN D [Concomitant]
  12. FISH OIL [Concomitant]
  13. DIPHENHYDRAMINE [Concomitant]
  14. MULTIVITAMINS [Concomitant]

REACTIONS (3)
  - Malignant neoplasm progression [Fatal]
  - Pneumonia [Unknown]
  - Oral discomfort [Unknown]
